FAERS Safety Report 24269399 (Version 2)
Quarter: 2024Q3

REPORT INFORMATION
  Report Type: Report from Study
  Country: KR (occurrence: KR)
  Receive Date: 20240830
  Receipt Date: 20240907
  Transmission Date: 20241016
  Serious: Yes (Other)
  Sender: TAKEDA
  Company Number: KR-TAKEDA-2024TUS085956

PATIENT
  Sex: Female

DRUGS (3)
  1. BRIGATINIB [Suspect]
     Active Substance: BRIGATINIB
     Indication: Non-small cell lung cancer
     Dosage: 90 MILLIGRAM, QD
     Route: 065
     Dates: start: 20221013, end: 20221018
  2. BRIGATINIB [Suspect]
     Active Substance: BRIGATINIB
     Dosage: 120 MILLIGRAM, QD
     Route: 065
     Dates: start: 20221019
  3. DAEWOONG URSA B [Concomitant]
     Indication: Liver function test increased
     Dosage: 200 MILLIGRAM
     Route: 048
     Dates: start: 20230302

REACTIONS (1)
  - Deep vein thrombosis [Recovered/Resolved]

NARRATIVE: CASE EVENT DATE: 20230405
